FAERS Safety Report 9987922 (Version 3)
Quarter: 2014Q2

REPORT INFORMATION
  Report Type: Spontaneous
  Country: US (occurrence: US)
  Receive Date: 20140307
  Receipt Date: 20140501
  Transmission Date: 20141212
  Serious: Yes (Hospitalization)
  Sender: FDA-Public Use
  Company Number: US-AMGEN-USASP2014009728

PATIENT
  Age: 59 Year
  Sex: Female
  Weight: 58.05 kg

DRUGS (5)
  1. ENBREL [Suspect]
     Indication: RHEUMATOID ARTHRITIS
     Dosage: 50 MG, QWK
     Route: 058
     Dates: start: 20140117
  2. MTX                                /00113801/ [Concomitant]
     Indication: RHEUMATOID ARTHRITIS
     Dosage: 2.5 MG, SIX TABLETS QWK
     Route: 048
  3. PREDNISONE [Concomitant]
     Indication: RHEUMATOID ARTHRITIS
     Dosage: 2.5 MG, ONE TABLET  QD
     Route: 048
     Dates: start: 20140114
  4. RELAFEN [Concomitant]
     Indication: RHEUMATOID ARTHRITIS
     Dosage: 750 MG, TWO TABLETS QD
     Route: 048
  5. RELAFEN [Concomitant]
     Indication: SPINAL DISORDER

REACTIONS (3)
  - Appendicitis [Recovered/Resolved]
  - Sinusitis [Recovered/Resolved]
  - Upper respiratory tract infection [Recovered/Resolved]
